FAERS Safety Report 4274443-3 (Version None)
Quarter: 2004Q1

REPORT INFORMATION
  Report Type: 
  Country: None (occurrence: None)
  Receive Date: 20040120
  Receipt Date: 20030905
  Transmission Date: 20041129
  Serious: Yes (Hospitalization)
  Sender: FDA-Public Use
  Company Number: US-BRISTOL-MYERS SQUIBB COMPANY-12382396

PATIENT
  Age: 8 Decade
  Sex: Female

DRUGS (6)
  1. IFOSFAMIDE [Suspect]
     Indication: SARCOMA
     Dosage: CYCLE 1, DAY 1
     Route: 042
     Dates: start: 20030903
  2. ADRIAMYCIN PFS [Concomitant]
  3. MESNA [Concomitant]
     Indication: PREMEDICATION
  4. DECADRON [Concomitant]
     Indication: PREMEDICATION
  5. KYTRIL [Concomitant]
     Indication: PREMEDICATION
  6. HYDRATION [Concomitant]

REACTIONS (1)
  - CONFUSIONAL STATE [None]
